FAERS Safety Report 23221049 (Version 1)
Quarter: 2023Q4

REPORT INFORMATION
  Report Type: Spontaneous
  Country: US (occurrence: US)
  Receive Date: 20231123
  Receipt Date: 20231123
  Transmission Date: 20240109
  Serious: No
  Sender: FDA-Public Use
  Company Number: US-CIPLA LTD.-2023US06431

PATIENT

DRUGS (6)
  1. GABAPENTIN [Suspect]
     Active Substance: GABAPENTIN
     Indication: Vulvovaginal pain
     Dosage: 700 MG (3 CAPSULES IN THE MORNING AND 1 IN THE AFTERNOON AND 3 CAPSULES AT NIGHT)
     Route: 048
     Dates: start: 2000, end: 2006
  2. GABAPENTIN [Suspect]
     Active Substance: GABAPENTIN
     Indication: Back pain
     Dosage: UNK, 1 CAPSULE IN THE MORNING AND 1 AT NIGHT OR SHE COULD ALSO TAKE 2 CAPSULES AT MORNING OR 2 CAPSU
     Route: 048
     Dates: start: 2022
  3. GABAPENTIN [Suspect]
     Active Substance: GABAPENTIN
     Dosage: UNK, 1 CAPSULE IN THE MORNING AND 1 AT NIGHT OR SHE COULD ALSO TAKE 2 CAPSULES AT MORNING OR 2 CAPSU
     Route: 048
     Dates: start: 202308
  4. GABAPENTIN [Suspect]
     Active Substance: GABAPENTIN
     Dosage: UNK, STRENGTH 100 MG
     Route: 048
     Dates: start: 2023
  5. NORTRIPTYLINE [Concomitant]
     Active Substance: NORTRIPTYLINE
     Indication: Back pain
     Dosage: 10 MILLIGRAM, QD
     Route: 065
     Dates: start: 2000
  6. ESTRADIOL [Concomitant]
     Active Substance: ESTRADIOL
     Indication: Hormone replacement therapy
     Dosage: 1 PATCH TWICE A WEEK
     Route: 065
     Dates: start: 2008

REACTIONS (6)
  - Adverse event [Recovering/Resolving]
  - Off label use [Unknown]
  - Ageusia [Recovering/Resolving]
  - Dysgeusia [Recovering/Resolving]
  - Product quality issue [Unknown]
  - Dry mouth [Recovering/Resolving]

NARRATIVE: CASE EVENT DATE: 20000101
